FAERS Safety Report 19920390 (Version 1)
Quarter: 2021Q4

REPORT INFORMATION
  Report Type: Spontaneous
  Country: FR (occurrence: FR)
  Receive Date: 20211005
  Receipt Date: 20211005
  Transmission Date: 20220303
  Serious: Yes (Hospitalization)
  Sender: FDA-Public Use
  Company Number: FR-JNJFOC-20160622411

PATIENT
  Age: 56 Year
  Sex: Male
  Weight: 74 kg

DRUGS (5)
  1. DEXAMETHASONE [Suspect]
     Active Substance: DEXAMETHASONE
     Indication: Plasma cell myeloma
     Dosage: 20 MILLIGRAM (ON DAYS 1 AND 16)
     Route: 065
     Dates: start: 20160321, end: 20160610
  2. DEXAMETHASONE [Suspect]
     Active Substance: DEXAMETHASONE
     Dosage: 40 MILLIGRAM (ON DAYS 1, 15)
     Route: 065
  3. VELCADE [Suspect]
     Active Substance: BORTEZOMIB
     Indication: Plasma cell myeloma
     Dosage: 2.5 MILLIGRAM (ON DAT 1,4,8 AND 11)
     Route: 058
     Dates: start: 20160321, end: 20160603
  4. DARATUMUMAB [Suspect]
     Active Substance: DARATUMUMAB
     Indication: Plasma cell myeloma
     Dosage: 1184 MILLIGRAM (ON DAYS 1 AND 15)
     Route: 042
     Dates: start: 20160321, end: 20160609
  5. THALIDOMIDE [Suspect]
     Active Substance: THALIDOMIDE
     Indication: Plasma cell myeloma
     Dosage: 100 MILLIGRAM (ON DAYS 1-28)
     Route: 048
     Dates: start: 20160321, end: 20160620

REACTIONS (1)
  - Lung disorder [Recovered/Resolved]

NARRATIVE: CASE EVENT DATE: 20160620
